FAERS Safety Report 20307813 (Version 1)
Quarter: 2022Q1

REPORT INFORMATION
  Report Type: Spontaneous
  Country: US (occurrence: US)
  Receive Date: 20220107
  Receipt Date: 20220107
  Transmission Date: 20220424
  Serious: No
  Sender: FDA-Public Use
  Company Number: US-ALLERGAN-2135743US

PATIENT
  Age: 58 Year
  Sex: Female

DRUGS (5)
  1. QULIPTA [Suspect]
     Active Substance: ATOGEPANT
     Indication: Migraine
     Dosage: 60 MG
     Route: 048
  2. CRESTOR [Concomitant]
     Active Substance: ROSUVASTATIN CALCIUM
  3. UNSPECIFIED INGREDIENT [Concomitant]
     Active Substance: UNSPECIFIED INGREDIENT
  4. MELATONIN [Concomitant]
     Active Substance: MELATONIN
     Dosage: UNK, QPM
  5. TOPAMAX [Concomitant]
     Active Substance: TOPIRAMATE
     Indication: Migraine prophylaxis

REACTIONS (1)
  - Migraine [Recovered/Resolved]

NARRATIVE: CASE EVENT DATE: 20211020
